FAERS Safety Report 8324950-9 (Version None)
Quarter: 2012Q2

REPORT INFORMATION
  Report Type: 
  Country: None (occurrence: None)
  Receive Date: 20120427
  Receipt Date: 20120413
  Transmission Date: 20120825
  Serious: Yes (Other)
  Sender: FDA-Public Use
  Company Number: NGX_01065_2012

PATIENT
  Sex: Female
  Weight: 83 kg

DRUGS (6)
  1. STUDY DRUG [Suspect]
     Indication: NEUROPATHY PERIPHERAL
     Dosage: (DF)
     Dates: start: 20120202, end: 20120202
  2. ESCITALOPRAM OXALATE [Concomitant]
  3. GABAPENTIN [Concomitant]
  4. DEPAKENE [Concomitant]
  5. QUTENZA [Suspect]
     Indication: NEUROPATHY PERIPHERAL
     Dosage: (1 DF 1X, [PATCH, APPLIED TO FOOT] TOPICAL)
     Route: 061
     Dates: start: 20120202, end: 20120202
  6. NORTRIPTYLINE HCL [Concomitant]

REACTIONS (1)
  - OFF LABEL USE [None]
